FAERS Safety Report 7480513-9 (Version None)
Quarter: 2011Q2

REPORT INFORMATION
  Report Type: 
  Country: None (occurrence: None)
  Receive Date: 20110516
  Receipt Date: 20110502
  Transmission Date: 20111010
  Serious: No
  Sender: FDA-Public Use
  Company Number: US-JNJFOC-20110501907

PATIENT
  Sex: Female
  Weight: 47.63 kg

DRUGS (3)
  1. FENTANYL [Suspect]
     Indication: PAIN
     Route: 062
     Dates: start: 20100101, end: 20100101
  2. FENTANYL [Suspect]
     Route: 062
     Dates: start: 20080101, end: 20100101
  3. FENTANYL [Suspect]
     Indication: PAIN
     Route: 062
     Dates: start: 20100101

REACTIONS (4)
  - INADEQUATE ANALGESIA [None]
  - DRUG DISPENSING ERROR [None]
  - DRUG INEFFECTIVE [None]
  - EXPIRED DRUG ADMINISTERED [None]
